FAERS Safety Report 5285464-6 (Version None)
Quarter: 2007Q1

REPORT INFORMATION
  Report Type: 
  Country: None (occurrence: None)
  Receive Date: 20070328
  Receipt Date: 20070313
  Transmission Date: 20070707
  Serious: Yes (Hospitalization)
  Sender: FDA-Public Use
  Company Number: 060001L07USA

PATIENT
  Age: 35 Year
  Sex: Female

DRUGS (4)
  1. CLOMIPHENE CITRATE [Suspect]
     Indication: ASSISTED FERTILISATION
  2. CLONAZEPAM [Concomitant]
  3. BUPROPION HCL [Concomitant]
  4. LAMOTRIGINE [Concomitant]

REACTIONS (13)
  - APHASIA [None]
  - BLOOD POTASSIUM DECREASED [None]
  - CONFUSIONAL STATE [None]
  - CRYING [None]
  - DELIRIUM [None]
  - DISTURBANCE IN ATTENTION [None]
  - FEELING ABNORMAL [None]
  - INSOMNIA [None]
  - INTENTIONAL SELF-INJURY [None]
  - LACERATION [None]
  - MOOD SWINGS [None]
  - PERSECUTORY DELUSION [None]
  - THINKING ABNORMAL [None]
